FAERS Safety Report 9703219 (Version 2)
Quarter: 2013Q4

REPORT INFORMATION
  Report Type: Spontaneous
  Country: GB (occurrence: GB)
  Receive Date: 20131122
  Receipt Date: 20131122
  Transmission Date: 20140711
  Serious: Yes (Other)
  Sender: FDA-Public Use
  Company Number: GB-DRREDDYS-GER/UKI/13/0034259

PATIENT
  Age: 41 Year
  Sex: Female
  Weight: 77 kg

DRUGS (5)
  1. TERBINAFINE [Suspect]
     Indication: ONYCHOMYCOSIS
     Route: 048
     Dates: start: 20130719, end: 20130729
  2. FERROUS FUMARATE [Concomitant]
     Indication: PRODUCT USED FOR UNKNOWN INDICATION
  3. MIRENA [Concomitant]
     Indication: PRODUCT USED FOR UNKNOWN INDICATION
  4. TETRACYCLINE [Concomitant]
     Indication: PRODUCT USED FOR UNKNOWN INDICATION
  5. TRIMETHOPRIM [Concomitant]
     Indication: PRODUCT USED FOR UNKNOWN INDICATION

REACTIONS (2)
  - Haematochezia [Recovered/Resolved]
  - Rectal haemorrhage [Recovered/Resolved]
